FAERS Safety Report 9847126 (Version 1)
Quarter: 2014Q1

REPORT INFORMATION
  Report Type: Report from Study
  Country: CO (occurrence: CO)
  Receive Date: 20140127
  Receipt Date: 20140127
  Transmission Date: 20141002
  Serious: Yes (Death, Other)
  Sender: FDA-Public Use
  Company Number: CO-ABBVIE-14P-036-1194465-00

PATIENT
  Age: 67 Year
  Sex: Female

DRUGS (1)
  1. HUMIRA [Suspect]
     Indication: RHEUMATOID ARTHRITIS
     Route: 058
     Dates: start: 20110729, end: 20131217

REACTIONS (4)
  - Nasal congestion [Fatal]
  - Respiratory distress [Fatal]
  - Pneumonia [Fatal]
  - Respiratory disorder [Unknown]
